FAERS Safety Report 9817942 (Version 1)
Quarter: 2014Q1

REPORT INFORMATION
  Report Type: Spontaneous
  Country: MX (occurrence: MX)
  Receive Date: 20140115
  Receipt Date: 20140115
  Transmission Date: 20141002
  Serious: Yes (Other)
  Sender: FDA-Public Use
  Company Number: PHHY2014MX003838

PATIENT
  Age: 76 Year
  Sex: Male
  Weight: 91 kg

DRUGS (16)
  1. RITALIN [Suspect]
     Indication: DEPRESSION
     Dosage: 10 MG, BID (1 TABLET IN THE MORNING AND 1 TABLET IN THE AFTERNOON)
     Route: 048
     Dates: start: 2009
  2. EXELON PATCH [Suspect]
     Indication: DEMENTIA ALZHEIMER^S TYPE
     Dosage: 4.6 MG, QD
     Route: 062
     Dates: start: 201301
  3. DIOVAN [Suspect]
     Indication: HYPERTENSION
     Dosage: 80 MG, QD
     Route: 048
     Dates: start: 201305
  4. DIOVAN [Suspect]
     Indication: RENAL FAILURE
  5. CLORTALIDONA [Concomitant]
     Indication: HYPERTENSION
     Dosage: 0.5 DF, QD
     Route: 048
     Dates: start: 2012
  6. EBIXA [Concomitant]
     Indication: DEPRESSION
     Dosage: 1 DF, QD
     Route: 048
     Dates: start: 2012
  7. SOMAZINA [Concomitant]
     Indication: ISCHAEMIC HEART DISEASE PROPHYLAXIS
     Dosage: 1 DF, QD
     Route: 048
     Dates: start: 201201
  8. CONTUMAX [Concomitant]
     Indication: CONSTIPATION
     Dosage: 1 DF, QW
     Route: 048
  9. SHOT B [Concomitant]
     Indication: VITAMIN SUPPLEMENTATION
     Dosage: 1 DF, QD
     Route: 048
     Dates: start: 201201
  10. CLONAZEPAM [Concomitant]
     Indication: INSOMNIA
     Dosage: 1 DF, UNK
     Route: 048
     Dates: start: 201201
  11. OLANZAPINE [Concomitant]
     Indication: INSOMNIA
     Dosage: 0.5 DF, QHS
     Route: 048
     Dates: start: 201201
  12. LEVOMEPROMAZINE [Concomitant]
     Indication: INSOMNIA
     Dosage: 0.25 DF, QHS
     Dates: start: 201201
  13. ACETYLSALICYLIC ACID [Concomitant]
     Indication: ISCHAEMIC HEART DISEASE PROPHYLAXIS
     Dosage: 0.5 DF, QD
     Route: 048
     Dates: start: 2009
  14. XALATAN [Concomitant]
     Indication: GLAUCOMA
     Dosage: 1 DRP, QHS
     Route: 047
     Dates: start: 2007
  15. TIMOLOL [Concomitant]
     Indication: GLAUCOMA
     Dosage: 2 DRP, Q12H
     Route: 047
     Dates: start: 2009
  16. PRAVASTATIN [Concomitant]
     Indication: BLOOD CHOLESTEROL ABNORMAL
     Dosage: 1 DF, QHS
     Route: 048
     Dates: start: 201310

REACTIONS (4)
  - Glaucoma [Not Recovered/Not Resolved]
  - Renal failure [Not Recovered/Not Resolved]
  - Dry eye [Not Recovered/Not Resolved]
  - Dyslipidaemia [Unknown]
